FAERS Safety Report 10736453 (Version 1)
Quarter: 2015Q1

REPORT INFORMATION
  Report Type: Spontaneous
  Country: DE (occurrence: DE)
  Receive Date: 20150126
  Receipt Date: 20150126
  Transmission Date: 20150721
  Serious: Yes (Other)
  Sender: FDA-Public Use
  Company Number: DE-ASTRAZENECA-2015SE05384

PATIENT
  Age: 41 Year
  Sex: Female
  Weight: 80 kg

DRUGS (9)
  1. DIAZEPAM. [Concomitant]
     Active Substance: DIAZEPAM
     Dosage: AS NEEDED
  2. FLUOXETINE [Concomitant]
     Active Substance: FLUOXETINE\FLUOXETINE HYDROCHLORIDE
     Indication: PANIC DISORDER
  3. SEROQUEL [Suspect]
     Active Substance: QUETIAPINE FUMARATE
     Indication: PANIC DISORDER
     Route: 048
     Dates: end: 20140131
  4. FOLIO FORTE [Concomitant]
     Active Substance: FOLIC ACID\VITAMINS
     Indication: PROPHYLAXIS
     Route: 048
  5. SEROQUEL [Suspect]
     Active Substance: QUETIAPINE FUMARATE
     Indication: PANIC DISORDER
     Route: 048
  6. NALOXONE [Concomitant]
     Active Substance: NALOXONE
     Indication: BACK PAIN
     Dosage: 188/15 MG/DAILY, MAXIMUM UNTIL GESTATION WEEK  5
  7. TAVOR [Concomitant]
     Active Substance: LORAZEPAM
     Indication: PANIC DISORDER
     Dosage: AS NEEDED (MAX DOSE 60 MG, DAILY)
     Route: 048
  8. TILIDINE [Concomitant]
     Active Substance: TILIDINE
     Indication: BACK PAIN
     Dosage: 188/15 MG/DAILY, MAXIMUM UNTIL GESTATION WEEK  5
  9. SEROQUEL [Suspect]
     Active Substance: QUETIAPINE FUMARATE
     Indication: PANIC DISORDER
     Route: 048
     Dates: start: 20130503

REACTIONS (2)
  - Exposure during pregnancy [Recovered/Resolved]
  - Gestational diabetes [Unknown]
